FAERS Safety Report 14837584 (Version 2)
Quarter: 2018Q2

REPORT INFORMATION
  Report Type: Spontaneous
  Country: US (occurrence: US)
  Receive Date: 20180502
  Receipt Date: 20180614
  Transmission Date: 20180711
  Serious: No
  Sender: FDA-Public Use
  Company Number: US-ASTRAZENECA-2018SE43894

PATIENT
  Sex: Female

DRUGS (1)
  1. SYMBICORT [Suspect]
     Active Substance: BUDESONIDE\FORMOTEROL FUMARATE DIHYDRATE
     Dosage: 160/4.5MCG, TWO INHALATIONS, TWICE DAILY
     Route: 055
     Dates: start: 20180401

REACTIONS (5)
  - Device failure [Unknown]
  - Intentional product misuse [Not Recovered/Not Resolved]
  - Device issue [Unknown]
  - Product quality issue [Unknown]
  - Respiratory disorder [Recovering/Resolving]

NARRATIVE: CASE EVENT DATE: 20180401
